FAERS Safety Report 8472016-X (Version None)
Quarter: 2012Q2

REPORT INFORMATION
  Report Type: 
  Country: None (occurrence: None)
  Receive Date: 20120627
  Receipt Date: 20120614
  Transmission Date: 20120825
  Serious: No
  Sender: FDA-Public Use
  Company Number: US-ASTRAZENECA-2012SE40182

PATIENT
  Age: 85 Year
  Sex: Male
  Weight: 63.5 kg

DRUGS (4)
  1. CRESTOR [Suspect]
     Route: 048
     Dates: end: 20120615
  2. FINASTERIDE [Concomitant]
  3. CRESTOR [Suspect]
     Indication: BLOOD CHOLESTEROL INCREASED
     Route: 048
     Dates: start: 20060101
  4. BENICAR [Concomitant]
     Indication: BLOOD PRESSURE ABNORMAL

REACTIONS (5)
  - DRY SKIN [None]
  - OFF LABEL USE [None]
  - ARTHRITIS [None]
  - PRURITUS [None]
  - LOW DENSITY LIPOPROTEIN INCREASED [None]
